FAERS Safety Report 12704298 (Version 2)
Quarter: 2016Q3

REPORT INFORMATION
  Report Type: Spontaneous
  Country: JP (occurrence: JP)
  Receive Date: 20160831
  Receipt Date: 20160915
  Transmission Date: 20161109
  Serious: Yes (Hospitalization, Other)
  Sender: FDA-Public Use
  Company Number: JP-ECLAT PHARMACEUTICALS-2016ECL00026

PATIENT
  Age: 61 Year
  Sex: Female
  Weight: 58 kg

DRUGS (1)
  1. RABEFINE [Suspect]
     Active Substance: AMOXICILLIN\METRONIDAZOLE\RABEPRAZOLE
     Indication: HELICOBACTER INFECTION
     Dosage: 1 DOSAGE UNITS, 2X/DAY
     Route: 048
     Dates: start: 20160610, end: 20160616

REACTIONS (1)
  - Erythema multiforme [Recovered/Resolved]

NARRATIVE: CASE EVENT DATE: 20160617
